FAERS Safety Report 9805990 (Version 1)
Quarter: 2014Q1

REPORT INFORMATION
  Report Type: Spontaneous
  Country: US (occurrence: US)
  Receive Date: 20140109
  Receipt Date: 20140109
  Transmission Date: 20141002
  Serious: No
  Sender: FDA-Public Use
  Company Number: US-ENDO PHARMACEUTICALS INC.-HCDA20130081

PATIENT
  Age: 4 Year
  Sex: Male
  Weight: 23.15 kg

DRUGS (1)
  1. HYDROCODONE BITARTRATE / ACETAMINOPHEN ORAL SOLUTION 7.5MG/500MG PER 1 [Suspect]
     Indication: PAIN
     Dosage: 2.5 MG/166.67 MG
     Route: 048

REACTIONS (3)
  - Feeling abnormal [Unknown]
  - Headache [Unknown]
  - Pain in extremity [Unknown]
